FAERS Safety Report 7593299-4 (Version None)
Quarter: 2011Q3

REPORT INFORMATION
  Report Type: 
  Country: None (occurrence: None)
  Receive Date: 20110706
  Receipt Date: 20110127
  Transmission Date: 20111222
  Serious: Yes (Death, Hospitalization, Other)
  Sender: FDA-Public Use
  Company Number: US-BAYER-2011-009226

PATIENT
  Age: 63 Year
  Sex: Male
  Weight: 127 kg

DRUGS (22)
  1. LASIX [Concomitant]
     Dosage: 20 MG, QD
     Dates: start: 20070522
  2. AMICAR [Concomitant]
     Dosage: 30 G
     Dates: start: 20070825, end: 20070825
  3. LANTUS [Concomitant]
     Dosage: 20 U, HS
     Route: 058
     Dates: start: 20070522
  4. AMICAR [Concomitant]
     Dosage: 10 G, UNK
     Route: 042
     Dates: start: 20070825, end: 20070825
  5. ANCEF [Concomitant]
     Dosage: 2 G, UNK
     Dates: start: 20070825, end: 20070825
  6. POTASSIUM CHLORIDE [Concomitant]
     Dosage: 21 MEQ, UNK
     Route: 042
     Dates: start: 20070825, end: 20070825
  7. TRICOR [Concomitant]
     Dosage: 145 MG, QD
     Dates: start: 20070522
  8. ZOCOR [Concomitant]
     Dosage: 20 MG, QD
     Dates: start: 20070522
  9. METFORMIN HCL [Concomitant]
     Dosage: 1 GM BID
     Dates: start: 20070522
  10. PROTAMINE SULFATE [Concomitant]
     Dosage: 320 MG, UNK
     Route: 042
     Dates: start: 20070825, end: 20070825
  11. MIDAZOLAM HCL [Concomitant]
     Dosage: UNK
     Route: 042
     Dates: start: 20070825, end: 20070825
  12. HYDROCHLOROTHIAZIDE [Concomitant]
     Dosage: 25 MG, QD
     Dates: start: 20070522
  13. AMICAR [Concomitant]
     Dosage: 10 G
     Dates: start: 20070825, end: 20070825
  14. HEPARIN [Concomitant]
     Dosage: 55000 U, UNK
     Route: 042
     Dates: start: 20070825, end: 20070825
  15. AMICAR [Concomitant]
     Dosage: 10 G
     Dates: start: 20070825, end: 20070825
  16. HYDRALAZINE HCL [Concomitant]
     Dosage: UNK
     Dates: start: 20070825, end: 20070825
  17. GLIPIZIDE [Concomitant]
     Dosage: 10 MG, BID
     Dates: start: 20070522
  18. BENAZEPRIL HYDROCHLORIDE [Concomitant]
     Dosage: 40 MG, QD
     Dates: start: 20070209
  19. FENTANYL [Concomitant]
     Dosage: UNK
     Route: 042
     Dates: start: 20070825, end: 20070825
  20. PROPOFOL [Concomitant]
     Dosage: UNK
     Route: 042
     Dates: start: 20070825, end: 20070825
  21. CALCIUM CHLORIDE [Concomitant]
     Dosage: 1 G, UNK
     Route: 042
     Dates: start: 20070825, end: 20070825
  22. TRASYLOL [Suspect]
     Indication: CORONARY ARTERY BYPASS
     Dosage: 1 ML TEST DOSE
     Route: 042
     Dates: start: 20070825

REACTIONS (12)
  - FEAR [None]
  - MULTI-ORGAN FAILURE [None]
  - UNEVALUABLE EVENT [None]
  - PAIN [None]
  - FEAR OF DEATH [None]
  - EMOTIONAL DISTRESS [None]
  - NERVOUSNESS [None]
  - DEPRESSION [None]
  - INJURY [None]
  - RENAL FAILURE [None]
  - RENAL INJURY [None]
  - ANXIETY [None]
